FAERS Safety Report 12476878 (Version 5)
Quarter: 2016Q4

REPORT INFORMATION
  Report Type: Report from Study
  Country: None (occurrence: JP)
  Receive Date: 20160617
  Receipt Date: 20161012
  Transmission Date: 20170207
  Serious: Yes (Hospitalization)
  Sender: FDA-Public Use
  Company Number: JP-ABBVIE-15K-087-1513766-00

PATIENT
  Age: 41 Year
  Sex: Female
  Weight: 54 kg

DRUGS (21)
  1. HUMIRA [Suspect]
     Active Substance: ADALIMUMAB
     Route: 058
     Dates: start: 20140210, end: 20140210
  2. URSODEOXYCHOLIC ACID [Concomitant]
     Active Substance: URSODIOL
     Indication: PROPHYLAXIS
  3. ACETAMINOPHEN. [Concomitant]
     Active Substance: ACETAMINOPHEN
     Indication: PROPHYLAXIS
  4. PYRIDOXAL PHOSPHATE HYDRATE [Concomitant]
     Indication: PROPHYLAXIS
     Route: 048
     Dates: start: 20131209, end: 20141020
  5. URSODEOXYCHOLIC ACID [Concomitant]
     Active Substance: URSODIOL
     Indication: PULMONARY TUBERCULOSIS
     Route: 048
  6. BENZBROMARONE [Concomitant]
     Active Substance: BENZBROMARONE
     Indication: PULMONARY TUBERCULOSIS
     Dates: start: 20150210
  7. BENZBROMARONE [Concomitant]
     Active Substance: BENZBROMARONE
     Indication: PROPHYLAXIS
  8. POTASSIUM CITRATE W/SODIUM CITRATE [Concomitant]
     Active Substance: POTASSIUM CITRATE\SODIUM CITRATE
     Indication: PULMONARY TUBERCULOSIS
     Route: 048
     Dates: start: 20150210
  9. PYRIDOXAL PHOSPHATE HYDRATE [Concomitant]
     Route: 048
     Dates: start: 20150210
  10. PREDNISOLONE. [Concomitant]
     Active Substance: PREDNISOLONE
     Indication: BEHCET^S SYNDROME
     Route: 048
     Dates: start: 20150210
  11. LOXOPROFEN SODIUM HYDRATE [Concomitant]
     Active Substance: LOXOPROFEN SODIUM DIHYDRATE
     Indication: PHARYNGEAL ULCERATION
     Route: 048
     Dates: start: 20150126
  12. ACETAMINOPHEN. [Concomitant]
     Active Substance: ACETAMINOPHEN
     Indication: PULMONARY TUBERCULOSIS
     Route: 048
  13. HUMIRA [Suspect]
     Active Substance: ADALIMUMAB
     Indication: BEHCET^S SYNDROME
     Route: 058
     Dates: start: 20140128, end: 20140128
  14. HUMIRA [Suspect]
     Active Substance: ADALIMUMAB
     Route: 058
     Dates: start: 20140224, end: 20150126
  15. IRSOGLADINE MALEATE [Concomitant]
     Active Substance: IRSOGLADINE MALEATE
     Indication: PROPHYLAXIS
  16. ISCOTIN [Suspect]
     Active Substance: ISONIAZID
     Indication: ANTIBIOTIC PROPHYLAXIS
     Route: 065
     Dates: start: 20131209, end: 20141019
  17. CEFCAPENE PIVOXIL HYDROCHLORIDE HYDRATE [Concomitant]
     Active Substance: CEFCAPENE PIVOXIL HYDROCHLORIDE HYDRATE
     Indication: PHARYNGEAL ULCERATION
     Route: 048
     Dates: start: 20150126, end: 20150210
  18. TEPRENONE [Concomitant]
     Active Substance: TEPRENONE
     Indication: PHARYNGEAL ULCERATION
     Route: 048
     Dates: start: 20150126
  19. IRSOGLADINE MALEATE [Concomitant]
     Active Substance: IRSOGLADINE MALEATE
     Indication: PULMONARY TUBERCULOSIS
     Route: 048
     Dates: start: 20150210
  20. POTASSIUM CITRATE W/SODIUM CITRATE [Concomitant]
     Active Substance: POTASSIUM CITRATE\SODIUM CITRATE
     Indication: PROPHYLAXIS
  21. PREDNISOLONE. [Concomitant]
     Active Substance: PREDNISOLONE
     Route: 048

REACTIONS (5)
  - Pharyngitis bacterial [Unknown]
  - Pulmonary tuberculosis [Recovered/Resolved]
  - C-reactive protein increased [Unknown]
  - Pharyngeal ulceration [Unknown]
  - Liver disorder [Recovered/Resolved]

NARRATIVE: CASE EVENT DATE: 20141020
